FAERS Safety Report 4680768-X (Version None)
Quarter: 2005Q2

REPORT INFORMATION
  Report Type: 
  Country: None (occurrence: None)
  Receive Date: 20050601
  Receipt Date: 20050601
  Transmission Date: 20051028
  Serious: Yes (Life-Threatening)
  Sender: FDA-Public Use
  Company Number: None

PATIENT
  Age: 69 Year
  Sex: Male
  Weight: 94 kg

DRUGS (1)
  1. MAGNESIUM SULFATE [Suspect]
     Dosage: 2 GRAMS ONE TIME IV
     Route: 042
     Dates: start: 20050428, end: 20050510

REACTIONS (2)
  - CATHETER RELATED INFECTION [None]
  - SERRATIA INFECTION [None]
